FAERS Safety Report 18040617 (Version 2)
Quarter: 2021Q1

REPORT INFORMATION
  Report Type: Spontaneous
  Country: US (occurrence: US)
  Receive Date: 20200717
  Receipt Date: 20210111
  Transmission Date: 20210419
  Serious: No
  Sender: FDA-Public Use
  Company Number: US-ROCHE-2602048

PATIENT
  Sex: Male
  Weight: 85.35 kg

DRUGS (1)
  1. HEMLIBRA [Suspect]
     Active Substance: EMICIZUMAB-KXWH
     Indication: PRODUCT USED FOR UNKNOWN INDICATION
     Dosage: RECEIVED LOADING DOSE
     Route: 065

REACTIONS (1)
  - Weight decreased [Not Recovered/Not Resolved]
